FAERS Safety Report 6528901-9 (Version None)
Quarter: 2009Q4

REPORT INFORMATION
  Report Type: 
  Country: None (occurrence: None)
  Receive Date: 20091223
  Receipt Date: 20091215
  Transmission Date: 20100525
  Serious: Yes (Other)
  Sender: FDA-Public Use
  Company Number: CERZ-1001077

PATIENT
  Sex: Female

DRUGS (1)
  1. CREZYME         (IMIGLUCERASE) POWDER FOR SOLUTION FOR INFUSION [Suspect]
     Indication: GAUCHER'S DISEASE
     Dosage: INTRAVENOUS
     Route: 042
     Dates: end: 20090922

REACTIONS (2)
  - BACK PAIN [None]
  - OSTEONECROSIS [None]
